FAERS Safety Report 5358935-1 (Version None)
Quarter: 2007Q2

REPORT INFORMATION
  Report Type: 
  Country: None (occurrence: None)
  Receive Date: 20070615
  Receipt Date: 20070607
  Transmission Date: 20071010
  Serious: Yes (Hospitalization)
  Sender: FDA-Public Use
  Company Number: B0475131A

PATIENT
  Age: 63 Year
  Sex: Female
  Weight: 63 kg

DRUGS (29)
  1. ZOVIRAX [Suspect]
     Indication: DRUG USE FOR UNKNOWN INDICATION
     Route: 065
     Dates: start: 20050930, end: 20051004
  2. REMICADE [Suspect]
     Indication: RHEUMATOID ARTHRITIS
     Dosage: 3MG PER DAY
     Route: 042
     Dates: start: 20031224
  3. METHOTREXATE [Suspect]
     Indication: DRUG USE FOR UNKNOWN INDICATION
     Route: 065
  4. RINDERON [Concomitant]
     Dates: start: 20040301
  5. ANTIHISTAMINE [Concomitant]
     Indication: PROPHYLAXIS
  6. PREDNISOLONE [Concomitant]
     Dosage: 5MG PER DAY
     Route: 048
     Dates: start: 20050124
  7. SOLU-MEDROL [Concomitant]
     Dosage: 125MG PER DAY
     Dates: start: 20060630
  8. TRIAMCINOLONE ACETONIDE [Concomitant]
     Indication: RHEUMATOID ARTHRITIS
  9. RIMATIL [Concomitant]
     Indication: RHEUMATOID ARTHRITIS
     Route: 048
  10. LOXONIN [Concomitant]
  11. UNKNOWN DRUG [Concomitant]
  12. KETOPROFEN [Concomitant]
  13. FAMOTIDINE [Concomitant]
     Route: 048
  14. MUCOSTA [Concomitant]
     Route: 048
  15. DOGMATYL [Concomitant]
     Route: 048
  16. ADRENAL CORTICAL EXTRACT [Concomitant]
  17. UNKNOWN [Concomitant]
  18. DICLOFENAC SODIUM [Concomitant]
  19. SODIUM HYALURONATE [Concomitant]
  20. MS ONSHIPPU [Concomitant]
  21. FOLIAMIN [Concomitant]
     Route: 048
  22. ISODINE GARGLE [Concomitant]
  23. CLEAMINE [Concomitant]
     Route: 048
  24. PANSPORIN [Concomitant]
  25. HYDROCORTISONE ACETATE [Concomitant]
  26. KEFRAL [Concomitant]
     Route: 048
  27. UREA [Concomitant]
  28. MENTAX [Concomitant]
  29. UNKNOWN [Concomitant]

REACTIONS (2)
  - HERPES ZOSTER [None]
  - RENAL IMPAIRMENT [None]
